FAERS Safety Report 7993618-0 (Version None)
Quarter: 2011Q4

REPORT INFORMATION
  Report Type: 
  Country: None (occurrence: None)
  Receive Date: 20111219
  Receipt Date: 20111208
  Transmission Date: 20120403
  Serious: Yes (Other)
  Sender: FDA-Public Use
  Company Number: US-ASTRAZENECA-2011SE47743

PATIENT
  Age: 61 Year
  Sex: Female
  Weight: 138.3 kg

DRUGS (19)
  1. FISH OIL [Concomitant]
     Route: 048
  2. LASIX [Concomitant]
     Route: 048
     Dates: end: 20091110
  3. MAXZIDE [Concomitant]
     Route: 048
  4. IMDUR [Concomitant]
     Route: 048
  5. KLOR-CON [Concomitant]
     Route: 048
     Dates: end: 20091011
  6. NITROGLYCERIN [Concomitant]
     Route: 060
  7. TOPROL-XL [Concomitant]
     Route: 048
     Dates: start: 20091221
  8. ATACAND [Suspect]
     Route: 048
  9. RANEXA [Concomitant]
     Route: 048
     Dates: start: 20091120
  10. ASPIRIN [Concomitant]
     Dosage: AS NEEDED
     Route: 048
  11. TOPROL-XL [Concomitant]
     Route: 048
  12. LIPITOR [Concomitant]
     Route: 048
  13. NORVASC [Concomitant]
     Route: 048
     Dates: start: 20091110
  14. CRESTOR [Suspect]
     Route: 048
  15. NAPROSYN [Concomitant]
     Dosage: WITH FOOD
     Route: 048
  16. STOOL SOFTENER [Concomitant]
     Route: 048
  17. PLAVIX [Concomitant]
     Route: 048
  18. NAPROXEN (ALEVE) [Concomitant]
     Route: 048
  19. NITROGLYCERIN [Concomitant]
     Dosage: 0.4, ONE AS NEEDED
     Route: 060

REACTIONS (30)
  - CHEST PAIN [None]
  - HYPOTENSION [None]
  - OBESITY [None]
  - FATIGUE [None]
  - ATRIAL FIBRILLATION [None]
  - OEDEMA [None]
  - MYOCARDIAL INFARCTION [None]
  - HYPERLIPIDAEMIA [None]
  - TROPONIN INCREASED [None]
  - DYSPNOEA [None]
  - OEDEMA PERIPHERAL [None]
  - WEIGHT DECREASED [None]
  - DIZZINESS [None]
  - ARTERIOSCLEROSIS CORONARY ARTERY [None]
  - HYPOKALAEMIA [None]
  - ESSENTIAL HYPERTENSION [None]
  - HEART RATE IRREGULAR [None]
  - COLD SWEAT [None]
  - CORONARY ARTERY DISEASE [None]
  - PALPITATIONS [None]
  - HYPERHIDROSIS [None]
  - ORTHOPNOEA [None]
  - ANGINA UNSTABLE [None]
  - NAUSEA [None]
  - CHEST DISCOMFORT [None]
  - DISORIENTATION [None]
  - COUGH [None]
  - THYROID DISORDER [None]
  - DIABETES MELLITUS [None]
  - ASTHENIA [None]
